FAERS Safety Report 20157191 (Version 1)
Quarter: 2021Q4

REPORT INFORMATION
  Report Type: Spontaneous
  Country: US (occurrence: None)
  Receive Date: 20211207
  Receipt Date: 20211207
  Transmission Date: 20220303
  Serious: No
  Sender: FDA-Public Use
  Company Number: None

PATIENT
  Sex: Male

DRUGS (15)
  1. CYCLOPHOSPHAMIDE [Suspect]
     Active Substance: CYCLOPHOSPHAMIDE
     Indication: Prostate cancer
     Dosage: OTHER FREQUENCY : QDX21D, 7D OFF;?
     Route: 048
     Dates: start: 20211112
  2. ABIRATERONE [Concomitant]
  3. ALBUTEROL [Concomitant]
  4. CALCIUM - D [Concomitant]
  5. CELEXA [Concomitant]
  6. COSOPT [Concomitant]
  7. FENTANYL [Concomitant]
  8. GABAPENTIN [Concomitant]
  9. MULTIVITAMIN [Concomitant]
  10. NALOXONE [Concomitant]
  11. NORCO [Concomitant]
  12. OMEPRAZOLE [Concomitant]
  13. PRED FORTE [Concomitant]
  14. PREDNISONE [Concomitant]
  15. TRAMADOL [Concomitant]

REACTIONS (2)
  - White blood cell count decreased [None]
  - Haemoglobin decreased [None]
